FAERS Safety Report 11758236 (Version 2)
Quarter: 2015Q4

REPORT INFORMATION
  Report Type: Report from Study
  Country: US (occurrence: US)
  Receive Date: 20151120
  Receipt Date: 20151123
  Transmission Date: 20160304
  Serious: Yes (Hospitalization, Other)
  Sender: FDA-Public Use
  Company Number: PHEH2014US010107

PATIENT
  Age: 55 Year
  Sex: Male
  Weight: 91 kg

DRUGS (23)
  1. SIMULECT [Suspect]
     Active Substance: BASILIXIMAB
     Dosage: 20 MG, QD
     Route: 042
     Dates: start: 20130510, end: 20130510
  2. TACROLIMUS. [Suspect]
     Active Substance: TACROLIMUS
     Indication: RENAL TRANSPLANT
     Dosage: SLIDING SCALE PER DRUG LEVEL, BID
     Route: 048
     Dates: start: 20130507, end: 20130507
  3. TACROLIMUS. [Suspect]
     Active Substance: TACROLIMUS
     Dosage: 5 MG/ 4 MG, BID
     Route: 048
     Dates: start: 20130510, end: 20130510
  4. TACROLIMUS. [Suspect]
     Active Substance: TACROLIMUS
     Dosage: 1 MG, BID
     Route: 048
     Dates: start: 20130604, end: 20130721
  5. TACROLIMUS. [Suspect]
     Active Substance: TACROLIMUS
     Dosage: 1 MG/ 2 MG, BID
     Route: 048
     Dates: start: 20130722, end: 20130722
  6. TACROLIMUS. [Suspect]
     Active Substance: TACROLIMUS
     Dosage: UNK
     Route: 048
     Dates: end: 20140423
  7. TACROLIMUS. [Suspect]
     Active Substance: TACROLIMUS
     Dosage: 2 MG, Q12H
     Route: 048
     Dates: start: 20140609
  8. TACROLIMUS. [Suspect]
     Active Substance: TACROLIMUS
     Dosage: 2 MG,BID
     Route: 048
     Dates: start: 20130723, end: 20130806
  9. TACROLIMUS. [Suspect]
     Active Substance: TACROLIMUS
     Dosage: 0.5 MG, Q12H
     Route: 048
     Dates: start: 20140411
  10. TACROLIMUS. [Suspect]
     Active Substance: TACROLIMUS
     Dosage: 0.5 MG, Q12H
     Route: 048
     Dates: start: 20140424, end: 20140606
  11. TACROLIMUS. [Suspect]
     Active Substance: TACROLIMUS
     Dosage: 3 MG/ 2 MG, BID
     Route: 048
     Dates: start: 20130514, end: 20130514
  12. TACROLIMUS. [Suspect]
     Active Substance: TACROLIMUS
     Dosage: 1 MG, BID
     Route: 048
     Dates: start: 20130808, end: 20131105
  13. CELLCEPT [Suspect]
     Active Substance: MYCOPHENOLATE MOFETIL\MYCOPHENOLATE MOFETIL HYDROCHLORIDE
     Indication: RENAL TRANSPLANT
     Dosage: 250 MG, BID
     Route: 048
     Dates: start: 20140429, end: 20140505
  14. CELLCEPT [Suspect]
     Active Substance: MYCOPHENOLATE MOFETIL\MYCOPHENOLATE MOFETIL HYDROCHLORIDE
     Indication: IMMUNOSUPPRESSION
     Dosage: 500 MG, Q12H
     Route: 048
     Dates: start: 20140506
  15. TACROLIMUS. [Suspect]
     Active Substance: TACROLIMUS
     Dosage: 5 MG,BID
     Route: 048
     Dates: start: 20130508, end: 20130509
  16. TACROLIMUS. [Suspect]
     Active Substance: TACROLIMUS
     Dosage: 4 MG/ 3MG, BID
     Route: 048
     Dates: start: 20130511, end: 20130511
  17. TACROLIMUS. [Suspect]
     Active Substance: TACROLIMUS
     Dosage: 2 MG/ 1 MG, BID
     Route: 048
     Dates: start: 20130807, end: 20130807
  18. CARBOPLATIN TAXOL [Suspect]
     Active Substance: CARBOPLATIN\PACLITAXEL
     Indication: NON-SMALL CELL LUNG CANCER
     Dosage: UNK
     Route: 065
     Dates: start: 20141119
  19. TACROLIMUS. [Suspect]
     Active Substance: TACROLIMUS
     Dosage: 2 MG, BID
     Route: 048
     Dates: start: 20130515, end: 20130603
  20. TACROLIMUS. [Suspect]
     Active Substance: TACROLIMUS
     Dosage: 1 MG, Q12H
     Route: 048
     Dates: start: 20140607, end: 20140608
  21. TACROLIMUS. [Suspect]
     Active Substance: TACROLIMUS
     Dosage: 3 MG, BID
     Route: 048
     Dates: start: 20130512, end: 20130512
  22. TACROLIMUS. [Suspect]
     Active Substance: TACROLIMUS
     Dosage: 1 MG/0.5 MG, BID
     Route: 048
     Dates: start: 20140410, end: 20140410
  23. SIMULECT [Suspect]
     Active Substance: BASILIXIMAB
     Indication: RENAL TRANSPLANT
     Dosage: 20 MG, BID
     Route: 042
     Dates: start: 20130507, end: 20130507

REACTIONS (5)
  - Renal transplant failure [Recovered/Resolved with Sequelae]
  - Chronic kidney disease [Recovered/Resolved with Sequelae]
  - Immunosuppressant drug level decreased [Unknown]
  - Kidney transplant rejection [Recovered/Resolved]
  - Mucosal inflammation [Recovering/Resolving]

NARRATIVE: CASE EVENT DATE: 20130716
